FAERS Safety Report 5885659-4 (Version None)
Quarter: 2008Q3

REPORT INFORMATION
  Report Type: 
  Country: None (occurrence: None)
  Receive Date: 20080912
  Receipt Date: 20080828
  Transmission Date: 20090109
  Serious: Yes (Disabling)
  Sender: FDA-Public Use
  Company Number: 2008S1015700

PATIENT
  Age: 68 Year
  Sex: Male

DRUGS (3)
  1. TEMAZEPAM [Suspect]
     Indication: RESTLESS LEGS SYNDROME
     Dosage: 30 MG;DAILY;ORAL
     Route: 048
     Dates: start: 20051201
  2. CABERGOLINE [Suspect]
     Indication: RESTLESS LEGS SYNDROME
     Dosage: 2 MG;DAILY;ORAL
     Route: 048
     Dates: start: 20051019
  3. FRUSEMIDE [Concomitant]

REACTIONS (4)
  - ASCITES [None]
  - MOBILITY DECREASED [None]
  - OEDEMA PERIPHERAL [None]
  - WEIGHT INCREASED [None]
